FAERS Safety Report 19474667 (Version 2)
Quarter: 2021Q3

REPORT INFORMATION
  Report Type: Spontaneous
  Country: PT (occurrence: PT)
  Receive Date: 20210629
  Receipt Date: 20210702
  Transmission Date: 20211014
  Serious: Yes (Death, Other)
  Sender: FDA-Public Use
  Company Number: PT-GILEAD-2021-0537976

PATIENT
  Age: 56 Year
  Sex: Male

DRUGS (3)
  1. COTRIMOXAZOLE [Concomitant]
     Active Substance: SULFAMETHOXAZOLE\TRIMETHOPRIM
  2. METFORMIN [Concomitant]
     Active Substance: METFORMIN HYDROCHLORIDE
  3. BIKTARVY [Suspect]
     Active Substance: BICTEGRAVIR SODIUM\EMTRICITABINE\TENOFOVIR ALAFENAMIDE FUMARATE
     Indication: HIV INFECTION
     Dosage: UNK
     Route: 065
     Dates: start: 20210222

REACTIONS (8)
  - Acute kidney injury [Unknown]
  - Dehydration [Unknown]
  - Death [Fatal]
  - Respiratory failure [Unknown]
  - Vomiting [Unknown]
  - Bladder catheterisation [Unknown]
  - Shock haemorrhagic [Unknown]
  - Haematuria [Unknown]

NARRATIVE: CASE EVENT DATE: 202103
